FAERS Safety Report 8970756 (Version 1)
Quarter: 2012Q4

REPORT INFORMATION
  Report Type: Report from Study
  Country: IT (occurrence: IT)
  Receive Date: 20121218
  Receipt Date: 20121218
  Transmission Date: 20130627
  Serious: Yes (Death, Other)
  Sender: FDA-Public Use
  Company Number: IT-CELGENEUS-083-20785-12112997

PATIENT
  Sex: Female

DRUGS (8)
  1. THALIDOMIDE [Suspect]
     Indication: MULTIPLE MYELOMA
     Dosage: 50 Milligram
     Route: 048
     Dates: start: 20080228, end: 20090116
  2. THALIDOMIDE [Suspect]
     Dosage: 50 Milligram
     Route: 048
     Dates: start: 20090116, end: 20091201
  3. THALIDOMIDE [Suspect]
     Dosage: 50 Milligram
     Route: 048
     Dates: end: 20101228
  4. VELCADE [Suspect]
     Indication: MULTIPLE MYELOMA
     Route: 065
     Dates: start: 20080228, end: 20090116
  5. VELCADE [Suspect]
     Route: 065
     Dates: start: 20090116, end: 20101228
  6. PREDNISONE [Suspect]
     Indication: MULTIPLE MYELOMA
     Route: 041
     Dates: start: 20080228, end: 20090116
  7. MELPHALAN [Suspect]
     Indication: MULTIPLE MYELOMA
     Route: 041
     Dates: start: 20080228, end: 20090116
  8. ANTIHYPERTENSIVES [Concomitant]
     Indication: HYPERTENSION
     Route: 065

REACTIONS (1)
  - Pancreatic neoplasm [Fatal]
